FAERS Safety Report 4482169-6 (Version None)
Quarter: 2004Q4

REPORT INFORMATION
  Report Type: 
  Country: None (occurrence: None)
  Receive Date: 20041020
  Receipt Date: 20041004
  Transmission Date: 20050328
  Serious: Yes (Other)
  Sender: FDA-Public Use
  Company Number: USA041079980

PATIENT
  Age: 76 Year
  Sex: Female
  Weight: 64 kg

DRUGS (3)
  1. FORTEO [Suspect]
     Indication: OSTEOPOROSIS
     Dosage: 20 UG/1 DAY
     Dates: start: 20040601
  2. CALCIUM [Concomitant]
  3. PREDNISONE [Concomitant]

REACTIONS (12)
  - ASTHENIA [None]
  - BLOOD CALCIUM INCREASED [None]
  - BLOOD CREATINE INCREASED [None]
  - BLOOD UREA INCREASED [None]
  - DYSARTHRIA [None]
  - FALL [None]
  - ORAL PAIN [None]
  - PHARMACEUTICAL PRODUCT COMPLAINT [None]
  - PHARYNGOLARYNGEAL PAIN [None]
  - RENAL DISORDER [None]
  - SPEECH DISORDER [None]
  - TREMOR [None]
